FAERS Safety Report 19952930 (Version 1)
Quarter: 2021Q4

REPORT INFORMATION
  Report Type: Other
  Country: US (occurrence: US)
  Receive Date: 20211014
  Receipt Date: 20211014
  Transmission Date: 20220303
  Serious: No
  Sender: FDA-Public Use
  Company Number: US-NEUROCRINE BIOSCIENCES INC.-2021NBI05619

PATIENT

DRUGS (1)
  1. OPICAPONE [Suspect]
     Active Substance: OPICAPONE
     Indication: Parkinson^s disease
     Dosage: 50 MILLIGRAM, QD (TAKE 1 CAPSULE BY MOUTH NIGHTLY.TAKE ON AN EMPTY STOMACH)
     Route: 048
     Dates: end: 202109

REACTIONS (2)
  - Dizziness [Unknown]
  - Drug ineffective [Unknown]
